FAERS Safety Report 7649437-8 (Version None)
Quarter: 2011Q3

REPORT INFORMATION
  Report Type: 
  Country: None (occurrence: None)
  Receive Date: 20110802
  Receipt Date: 20110725
  Transmission Date: 20111222
  Serious: Yes (Other)
  Sender: FDA-Public Use
  Company Number: CN-ASTELLAS-2011US004407

PATIENT
  Age: 83 Year
  Sex: Male

DRUGS (2)
  1. TARCEVA [Suspect]
     Dosage: 150 MG, UID/QD
     Route: 048
     Dates: start: 20110716
  2. TARCEVA [Suspect]
     Indication: LUNG NEOPLASM MALIGNANT
     Dosage: 150 MG, UID/QD
     Route: 048
     Dates: start: 20110115, end: 20110711

REACTIONS (12)
  - LYMPH NODE PAIN [None]
  - PYREXIA [None]
  - PAIN [None]
  - COUGH [None]
  - DRY SKIN [None]
  - DIARRHOEA [None]
  - OESOPHAGEAL PAIN [None]
  - MUSCLE SPASMS [None]
  - CONDITION AGGRAVATED [None]
  - HAEMOPTYSIS [None]
  - HEMIPLEGIA [None]
  - RASH [None]
